FAERS Safety Report 17223676 (Version 2)
Quarter: 2020Q1

REPORT INFORMATION
  Report Type: Spontaneous
  Country: RU (occurrence: RU)
  Receive Date: 20200102
  Receipt Date: 20200109
  Transmission Date: 20200409
  Serious: Yes (Other)
  Sender: FDA-Public Use
  Company Number: RU-EMD SERONO-9137871

PATIENT
  Age: 46 Year
  Sex: Female

DRUGS (4)
  1. JANUVIA [Concomitant]
     Active Substance: SITAGLIPTIN PHOSPHATE
     Indication: DIABETES MELLITUS
  2. FARXIGA [Concomitant]
     Active Substance: DAPAGLIFLOZIN PROPANEDIOL
     Indication: DIABETES MELLITUS
  3. METFORMIN [Suspect]
     Active Substance: METFORMIN HYDROCHLORIDE
     Indication: DIABETES MELLITUS
  4. VILDAGLIPTIN [Concomitant]
     Active Substance: VILDAGLIPTIN
     Indication: DIABETES MELLITUS

REACTIONS (8)
  - Cerebrovascular accident [Unknown]
  - Condition aggravated [Unknown]
  - Gait disturbance [Unknown]
  - Diabetic nephropathy [Unknown]
  - Peripheral arterial occlusive disease [Unknown]
  - Visual impairment [Unknown]
  - Malaise [Unknown]
  - Hypokinesia [Unknown]

NARRATIVE: CASE EVENT DATE: 2018
